FAERS Safety Report 23255676 (Version 1)
Quarter: 2023Q4

REPORT INFORMATION
  Report Type: Spontaneous
  Country: NL (occurrence: NL)
  Receive Date: 20231204
  Receipt Date: 20231204
  Transmission Date: 20240109
  Serious: Yes (Hospitalization)
  Sender: FDA-Public Use
  Company Number: None

PATIENT

DRUGS (2)
  1. LAMOTRIGINE [Suspect]
     Active Substance: LAMOTRIGINE
     Indication: Bipolar disorder
     Dosage: 25 MG (TABLET, 25 MG (MILLIGRAM))
     Route: 065
     Dates: start: 20230922, end: 20230926
  2. PREDNISOLONE [Concomitant]
     Active Substance: PREDNISOLONE
     Indication: Product used for unknown indication
     Dosage: 60 MG (CAPSULE, 60 MG (MILLIGRAM))
     Route: 065

REACTIONS (2)
  - Rash papular [Recovered/Resolved]
  - Dermatosis [Recovered/Resolved]
